FAERS Safety Report 10040308 (Version 1)
Quarter: 2014Q1

REPORT INFORMATION
  Report Type: Spontaneous
  Country: TR (occurrence: TR)
  Receive Date: 20140327
  Receipt Date: 20140327
  Transmission Date: 20141002
  Serious: Yes (Other)
  Sender: FDA-Public Use
  Company Number: TR-B.I. PHARMACEUTICALS,INC./RIDGEFIELD-2014-BI-12815TK

PATIENT
  Sex: Female
  Weight: 105 kg

DRUGS (5)
  1. PRADAXA [Suspect]
     Indication: PRODUCT USED FOR UNKNOWN INDICATION
     Dosage: 300 MG
     Route: 048
     Dates: start: 20131129
  2. OLMESARTAN [Concomitant]
     Route: 048
  3. AMLODIPIN [Concomitant]
     Route: 048
  4. DILTIAZEM [Concomitant]
     Dosage: 240 MG
     Route: 048
  5. METFORMIIN [Concomitant]
     Dosage: DOSE PER APPLICATION: 1000; DAILY DOSE: 2000
     Route: 048

REACTIONS (1)
  - Proteinuria [Not Recovered/Not Resolved]
